FAERS Safety Report 7722284-4 (Version None)
Quarter: 2011Q3

REPORT INFORMATION
  Report Type: 
  Country: None (occurrence: None)
  Receive Date: 20110831
  Receipt Date: 20110822
  Transmission Date: 20111222
  Serious: Yes (Other)
  Sender: FDA-Public Use
  Company Number: US-ASTRAZENECA-2009UW08335

PATIENT
  Age: 67 Year
  Sex: Female
  Weight: 93.9 kg

DRUGS (9)
  1. NEXIUM [Suspect]
     Route: 048
  2. PAXIL [Concomitant]
  3. HYDROCHLOROTHIAZIDE [Concomitant]
  4. FLEXERIL [Concomitant]
  5. ZOMIG [Suspect]
     Route: 048
  6. VICODIN [Concomitant]
  7. ARIMIDEX [Suspect]
     Indication: BREAST CANCER
     Route: 048
     Dates: start: 20060101
  8. POTASSIUM [Concomitant]
  9. XANAX [Concomitant]

REACTIONS (8)
  - WRONG DRUG ADMINISTERED [None]
  - NEOPLASM MALIGNANT [None]
  - HOT FLUSH [None]
  - HYPERHIDROSIS [None]
  - MIGRAINE [None]
  - INSOMNIA [None]
  - CONSTIPATION [None]
  - DRY MOUTH [None]
